FAERS Safety Report 5430316-1 (Version None)
Quarter: 2007Q3

REPORT INFORMATION
  Report Type: 
  Country: None (occurrence: None)
  Receive Date: 20070830
  Receipt Date: 20070820
  Transmission Date: 20080115
  Serious: Yes (Life-Threatening, Hospitalization)
  Sender: FDA-Public Use
  Company Number: PHEH2007US11548

PATIENT
  Sex: Female

DRUGS (2)
  1. ^SODILOL^ [Concomitant]
  2. TEKTURNA [Suspect]
     Indication: HYPERTENSION
     Dosage: 150 MG, QD
     Route: 048

REACTIONS (3)
  - ARRHYTHMIA [None]
  - MALAISE [None]
  - TORSADE DE POINTES [None]
